FAERS Safety Report 25084954 (Version 1)
Quarter: 2025Q1

REPORT INFORMATION
  Report Type: Spontaneous
  Country: NL (occurrence: NL)
  Receive Date: 20250317
  Receipt Date: 20250317
  Transmission Date: 20250408
  Serious: Yes (Hospitalization)
  Sender: NOVARTIS
  Company Number: None

PATIENT
  Age: 9 Year
  Sex: Female
  Weight: 24 kg

DRUGS (1)
  1. SECUKINUMAB [Suspect]
     Active Substance: SECUKINUMAB
     Indication: Pustular psoriasis
     Dosage: 1 DOSAGE FORM, Q2MO (1 INJECTION EVERY 2 MONTHS)
     Route: 065
     Dates: start: 20240304

REACTIONS (1)
  - Diabetes mellitus [Not Recovered/Not Resolved]
